FAERS Safety Report 20975470 (Version 1)
Quarter: 2022Q2

REPORT INFORMATION
  Report Type: Spontaneous
  Country: US (occurrence: US)
  Receive Date: 20220617
  Receipt Date: 20220617
  Transmission Date: 20220720
  Serious: Yes (Other)
  Sender: FDA-Public Use
  Company Number: US-SA-SAC20220615000253

PATIENT
  Age: 59 Year
  Sex: Female

DRUGS (2)
  1. ZANTAC [Suspect]
     Active Substance: RANITIDINE HYDROCHLORIDE
     Indication: Dyspepsia
     Dosage: 75 MG, QD
     Route: 065
     Dates: start: 200301
  2. ZANTAC [Suspect]
     Active Substance: RANITIDINE HYDROCHLORIDE
     Dosage: 150 MG, QD
     Route: 065
     Dates: end: 201911

REACTIONS (6)
  - Oesophageal carcinoma [Not Recovered/Not Resolved]
  - Renal cancer stage IV [Not Recovered/Not Resolved]
  - Hepatic cancer stage IV [Not Recovered/Not Resolved]
  - Pancreatic carcinoma stage IV [Not Recovered/Not Resolved]
  - Gastric cancer stage IV [Not Recovered/Not Resolved]
  - Small intestine carcinoma stage IV [Not Recovered/Not Resolved]

NARRATIVE: CASE EVENT DATE: 20190601
